FAERS Safety Report 9380692 (Version 1)
Quarter: 2013Q3

REPORT INFORMATION
  Report Type: Spontaneous
  Country: FR (occurrence: FR)
  Receive Date: 20130702
  Receipt Date: 20130702
  Transmission Date: 20140515
  Serious: Yes (Life-Threatening, Hospitalization, Other)
  Sender: FDA-Public Use
  Company Number: FR-BAXTER-2013BAX024377

PATIENT
  Age: 49 Year
  Sex: Male

DRUGS (7)
  1. SEVOFLURANE [Suspect]
     Indication: MAINTENANCE OF ANAESTHESIA
     Route: 055
     Dates: start: 20090908, end: 20090908
  2. SUFENTANIL [Suspect]
     Indication: ANAESTHESIA
     Route: 042
     Dates: start: 20090908, end: 20090908
  3. MIDAZOLAM [Suspect]
     Indication: ANAESTHESIA
     Route: 042
     Dates: start: 20090908, end: 20090908
  4. PROPOFOL [Suspect]
     Indication: ANAESTHESIA
     Route: 042
     Dates: start: 20090908, end: 20090908
  5. PERFALGAN [Suspect]
     Indication: PRODUCT USED FOR UNKNOWN INDICATION
     Route: 042
     Dates: start: 20090908, end: 20090908
  6. TOPALGIC [Suspect]
     Indication: PRODUCT USED FOR UNKNOWN INDICATION
     Route: 042
     Dates: start: 20090908, end: 20090908
  7. PROFENID [Suspect]
     Indication: PRODUCT USED FOR UNKNOWN INDICATION
     Route: 042
     Dates: start: 20090908, end: 20090908

REACTIONS (6)
  - Circulatory collapse [Recovered/Resolved]
  - Acute pulmonary oedema [Recovered/Resolved]
  - Multi-organ failure [Recovered/Resolved]
  - Mydriasis [Unknown]
  - Convulsion [Unknown]
  - Congestive cardiomyopathy [Unknown]
